FAERS Safety Report 22183638 (Version 1)
Quarter: 2023Q2

REPORT INFORMATION
  Report Type: Spontaneous
  Country: FR (occurrence: FR)
  Receive Date: 20230406
  Receipt Date: 20230406
  Transmission Date: 20230722
  Serious: Yes (Life-Threatening)
  Sender: FDA-Public Use
  Company Number: None

PATIENT
  Age: 62 Year
  Sex: Male
  Weight: 72 kg

DRUGS (9)
  1. FLUOROURACIL [Suspect]
     Active Substance: FLUOROURACIL
     Indication: Adenocarcinoma pancreas
     Dosage: 600MG + 3610MG
     Route: 042
     Dates: start: 20230124, end: 20230124
  2. LEUCOVORIN CALCIUM [Suspect]
     Active Substance: LEUCOVORIN CALCIUM
     Indication: Prophylaxis
     Dosage: 376 MG
     Route: 042
     Dates: start: 20230124, end: 20230124
  3. METHYLPREDNISOLONE [Suspect]
     Active Substance: METHYLPREDNISOLONE
     Indication: Prophylaxis
     Dosage: 8 MG
     Route: 042
     Dates: start: 20230124, end: 20230124
  4. OXALIPLATIN [Suspect]
     Active Substance: OXALIPLATIN
     Indication: Adenocarcinoma pancreas
     Dosage: 127.5 MG
     Route: 042
     Dates: start: 20230124, end: 20230124
  5. IRINOTECAN HYDROCHLORIDE [Suspect]
     Active Substance: IRINOTECAN HYDROCHLORIDE
     Indication: Adenocarcinoma pancreas
     Dosage: 270 MG
     Route: 042
     Dates: start: 20230124, end: 20230124
  6. ATROPINE [Suspect]
     Active Substance: ATROPINE
     Indication: Chemotherapy
     Dosage: 0.5 MG
     Route: 058
     Dates: start: 20230124, end: 20230124
  7. MAGNESIUM [Suspect]
     Active Substance: MAGNESIUM
     Indication: Prophylaxis
     Dosage: 8 MG
     Route: 042
     Dates: start: 20230124, end: 20230124
  8. CALCIUM GLUCONATE [Suspect]
     Active Substance: CALCIUM GLUCONATE
     Indication: Prophylaxis
     Dosage: 8 MG
     Route: 042
     Dates: start: 20230124, end: 20230124
  9. ONDANSETRON HYDROCHLORIDE [Suspect]
     Active Substance: ONDANSETRON HYDROCHLORIDE
     Indication: Prophylaxis
     Dosage: 8 MG
     Route: 042
     Dates: start: 20230124, end: 20230124

REACTIONS (1)
  - Thrombocytopenia [Recovered/Resolved]

NARRATIVE: CASE EVENT DATE: 20230125
